FAERS Safety Report 13813075 (Version 3)
Quarter: 2018Q4

REPORT INFORMATION
  Report Type: Spontaneous
  Country: None (occurrence: GB)
  Receive Date: 20170731
  Receipt Date: 20181120
  Transmission Date: 20190204
  Serious: Yes (Other)
  Sender: FDA-Public Use
  Company Number: GB-ORION CORPORATION ORION PHARMA-17_00002520

PATIENT
  Age: 39 Year
  Sex: Female

DRUGS (18)
  1. COLCHICINE. [Suspect]
     Active Substance: COLCHICINE
     Indication: URTICARIAL VASCULITIS
     Dosage: OVER 2 YEARS
     Route: 065
  2. RITUXIMAB. [Suspect]
     Active Substance: RITUXIMAB
     Indication: URTICARIAL VASCULITIS
     Dosage: OVER 2 YEARS
     Route: 065
  3. HYDROXYCHLOROQUINE [Suspect]
     Active Substance: HYDROXYCHLOROQUINE
     Indication: URTICARIAL VASCULITIS
     Dosage: OVER 2 YEARS
     Route: 065
  4. AZATHIOPRINE. [Suspect]
     Active Substance: AZATHIOPRINE
     Indication: HYPERSENSITIVITY VASCULITIS
  5. CICLOSPORIN [Concomitant]
     Active Substance: CYCLOSPORINE
     Indication: URTICARIAL VASCULITIS
     Route: 065
  6. METHOTREXATE. [Suspect]
     Active Substance: METHOTREXATE
     Indication: URTICARIAL VASCULITIS
     Dosage: OVER 2 YEARS
     Route: 065
  7. RITUXIMAB. [Suspect]
     Active Substance: RITUXIMAB
     Indication: HYPERSENSITIVITY VASCULITIS
  8. DAPSONE. [Suspect]
     Active Substance: DAPSONE
     Indication: URTICARIAL VASCULITIS
     Dosage: OVER 2 YEARS
     Route: 065
  9. DAPSONE. [Suspect]
     Active Substance: DAPSONE
     Indication: HYPERSENSITIVITY VASCULITIS
  10. HYDROXYCHLOROQUINE [Suspect]
     Active Substance: HYDROXYCHLOROQUINE
     Indication: HYPERSENSITIVITY VASCULITIS
  11. AZATHIOPRINE. [Suspect]
     Active Substance: AZATHIOPRINE
     Indication: URTICARIAL VASCULITIS
     Dosage: OVER 2 YEARS
     Route: 065
  12. COLCHICINE. [Suspect]
     Active Substance: COLCHICINE
     Indication: HYPERSENSITIVITY VASCULITIS
  13. PREDNISOLONE. [Suspect]
     Active Substance: PREDNISOLONE
     Indication: HYPERSENSITIVITY VASCULITIS
  14. CICLOSPORIN [Concomitant]
     Active Substance: CYCLOSPORINE
     Indication: HYPERSENSITIVITY VASCULITIS
  15. METHOTREXATE. [Suspect]
     Active Substance: METHOTREXATE
     Indication: HYPERSENSITIVITY VASCULITIS
  16. PREDNISOLONE. [Suspect]
     Active Substance: PREDNISOLONE
     Indication: URTICARIAL VASCULITIS
     Dosage: OVER 2 YEARS
     Route: 065
  17. MYCOPHENOLATE MOFETIL. [Suspect]
     Active Substance: MYCOPHENOLATE MOFETIL
     Indication: URTICARIAL VASCULITIS
     Dosage: OVER 2 YEARS
     Route: 065
  18. MYCOPHENOLATE MOFETIL. [Suspect]
     Active Substance: MYCOPHENOLATE MOFETIL
     Indication: HYPERSENSITIVITY VASCULITIS

REACTIONS (5)
  - Anaphylactic reaction [Recovered/Resolved]
  - Drug ineffective [Unknown]
  - Leukopenia [Recovered/Resolved]
  - Alopecia [Recovered/Resolved]
  - Lethargy [Recovered/Resolved]
